FAERS Safety Report 18761349 (Version 1)
Quarter: 2021Q1

REPORT INFORMATION
  Report Type: Spontaneous
  Country: DE (occurrence: DE)
  Receive Date: 20210120
  Receipt Date: 20210120
  Transmission Date: 20210419
  Serious: Yes (Other)
  Sender: FDA-Public Use
  Company Number: DE-TEVA-2021-DE-1870082

PATIENT
  Age: 6 Year
  Sex: Female

DRUGS (5)
  1. CYCLOPHOSPHAMIDE. [Suspect]
     Active Substance: CYCLOPHOSPHAMIDE
     Indication: IMMUNOSUPPRESSANT DRUG THERAPY
     Dosage: AT THE TIME OF LAST FOLLOW?UP EXAMINATION, SHE WAS NOT RECEIVING IMMUNOSUPPRESSION TREATMENT
     Route: 065
  2. BUSULFAN. [Suspect]
     Active Substance: BUSULFAN
     Indication: IMMUNOSUPPRESSANT DRUG THERAPY
     Dosage: AT THE TIME OF LAST FOLLOW?UP EXAMINATION, SHE WAS NOT RECEIVING IMMUNOSUPPRESSION TREATMENT
     Route: 065
  3. ALEMTUZUMAB [Suspect]
     Active Substance: ALEMTUZUMAB
     Indication: IMMUNOSUPPRESSANT DRUG THERAPY
     Dosage: AT THE TIME OF LAST FOLLOW?UP EXAMINATION, SHE WAS NOT RECEIVING IMMUNOSUPPRESSION TREATMENT
     Route: 065
  4. FLUDARABINE [Suspect]
     Active Substance: FLUDARABINE PHOSPHATE
     Indication: IMMUNOSUPPRESSANT DRUG THERAPY
     Dosage: AT THE TIME OF LAST FOLLOW?UP EXAMINATION, SHE WAS NOT RECEIVING IMMUNOSUPPRESSION TREATMENT
     Route: 065
  5. ALEMTUZUMAB [Suspect]
     Active Substance: ALEMTUZUMAB
     Dosage: NEXT THREE DOSES
     Route: 065

REACTIONS (1)
  - Cytomegalovirus infection reactivation [Unknown]
